FAERS Safety Report 23520804 (Version 1)
Quarter: 2024Q1

REPORT INFORMATION
  Report Type: Spontaneous
  Country: US (occurrence: US)
  Receive Date: 20240214
  Receipt Date: 20240214
  Transmission Date: 20240409
  Serious: No
  Sender: FDA-Public Use
  Company Number: US-ELI_LILLY_AND_COMPANY-US202402007756

PATIENT
  Age: 69 Year
  Sex: Male

DRUGS (6)
  1. HUMALOG [Suspect]
     Active Substance: INSULIN LISPRO
     Indication: Product used for unknown indication
     Dosage: UNK UNK, UNKNOWN
     Route: 065
  2. HUMALOG [Suspect]
     Active Substance: INSULIN LISPRO
     Dosage: UNK UNK, UNKNOWN
     Route: 065
  3. HUMALOG KWIKPEN [Concomitant]
     Active Substance: INSULIN LISPRO
     Indication: Type 1 diabetes mellitus
     Dosage: 105 U, UNKNOWN
     Route: 058
  4. HUMALOG KWIKPEN [Concomitant]
     Active Substance: INSULIN LISPRO
     Indication: Type 1 diabetes mellitus
     Dosage: 105 U, UNKNOWN
     Route: 058
  5. HUMALOG KWIKPEN [Concomitant]
     Active Substance: INSULIN LISPRO
     Dosage: 105 U, UNKNOWN
     Route: 058
  6. HUMALOG KWIKPEN [Concomitant]
     Active Substance: INSULIN LISPRO
     Dosage: 105 U, UNKNOWN
     Route: 058

REACTIONS (2)
  - Drug resistance [Unknown]
  - Blood glucose abnormal [Unknown]
